FAERS Safety Report 16281151 (Version 3)
Quarter: 2019Q4

REPORT INFORMATION
  Report Type: Spontaneous
  Country: US (occurrence: US)
  Receive Date: 20190507
  Receipt Date: 20191105
  Transmission Date: 20200122
  Serious: Yes (Hospitalization)
  Sender: FDA-Public Use
  Company Number: US-TEVA-2019-US-1046489

PATIENT
  Sex: Female

DRUGS (4)
  1. SPIRONOLACTONE. [Concomitant]
     Active Substance: SPIRONOLACTONE
  2. CLONIDINE. [Suspect]
     Active Substance: CLONIDINE
     Dosage: .3 MILLIGRAM DAILY;
     Route: 062
     Dates: start: 20180103, end: 20191015
  3. CARVEDIOL [Concomitant]
     Active Substance: CARVEDILOL
  4. AMLODIPINE [Concomitant]
     Active Substance: AMLODIPINE BESYLATE

REACTIONS (5)
  - Product adhesion issue [Unknown]
  - Product communication issue [Unknown]
  - Blood pressure increased [Recovered/Resolved]
  - Product quality issue [Unknown]
  - Skin burning sensation [Recovered/Resolved]

NARRATIVE: CASE EVENT DATE: 2018
